FAERS Safety Report 10688545 (Version 1)
Quarter: 2014Q4

REPORT INFORMATION
  Report Type: Spontaneous
  Country: US (occurrence: None)
  Receive Date: 20141231
  Receipt Date: 20141231
  Transmission Date: 20150529
  Serious: Yes (Death)
  Sender: FDA-Public Use
  Company Number: COR_00209_2014

PATIENT

DRUGS (4)
  1. CARBOPLATIN. [Suspect]
     Active Substance: CARBOPLATIN
     Indication: NON-SMALL CELL LUNG CANCER STAGE III
     Dosage: AUC 5 ON DAY 1 FOR 4 CYCLES, NOT OTHERWISE SPECIFIED
     Route: 042
  2. PACLITAXEL. [Concomitant]
     Active Substance: PACLITAXEL
  3. GEMCITABINE [Suspect]
     Active Substance: GEMCITABINE\GEMCITABINE HYDROCHLORIDE
     Indication: NON-SMALL CELL LUNG CANCER STAGE III
     Dosage: ON DAYS 1 AND 8, EVERY 21 DAYS FOR 4 CYCLES, NOT OTHERWISE SPECIFIED
     Route: 042
  4. TIMED THORACIC RADIOTHERAPY [Concomitant]

REACTIONS (3)
  - Toxicity to various agents [None]
  - Febrile neutropenia [None]
  - Sepsis [None]
